FAERS Safety Report 7479311-1 (Version None)
Quarter: 2011Q2

REPORT INFORMATION
  Report Type: 
  Country: None (occurrence: None)
  Receive Date: 20110513
  Receipt Date: 20110509
  Transmission Date: 20111010
  Serious: Yes (Life-Threatening, Hospitalization, Other)
  Sender: FDA-Public Use
  Company Number: FR-PFIZER INC-2011098499

PATIENT
  Age: 49 Year
  Sex: Male

DRUGS (8)
  1. XANAX [Concomitant]
     Dosage: 0.5 MG, UNK
  2. ATARAX [Concomitant]
     Dosage: 100 MG, UNK
  3. SOLU-MEDROL [Suspect]
     Dosage: UNK
     Route: 042
     Dates: start: 20101209
  4. KETALAR [Suspect]
     Dosage: UNK
     Route: 042
     Dates: start: 20101209
  5. ULTIVA [Suspect]
     Dosage: UNK
     Route: 042
     Dates: start: 20101209
  6. ZANTAC [Concomitant]
     Dosage: 100 MG, UNK
  7. VARENICLINE TARTRATE [Suspect]
     Indication: SMOKING CESSATION THERAPY
     Dosage: 1 DF, 2X/DAY
     Route: 048
     Dates: start: 20101123, end: 20101207
  8. DIPRIVAN [Suspect]
     Dosage: UNK
     Route: 042
     Dates: start: 20101209

REACTIONS (5)
  - BLOOD PRESSURE IMMEASURABLE [None]
  - VENTRICULAR FIBRILLATION [None]
  - ARRHYTHMIA [None]
  - BONE CYST EXCISION [None]
  - BRADYCARDIA [None]
